FAERS Safety Report 21247728 (Version 1)
Quarter: 2022Q3

REPORT INFORMATION
  Report Type: Spontaneous
  Country: US (occurrence: None)
  Receive Date: 20220824
  Receipt Date: 20220824
  Transmission Date: 20221027
  Serious: No
  Sender: FDA-Public Use
  Company Number: US-Emmaus Medical, Inc.-EMM202109-000161

PATIENT
  Sex: Male
  Weight: 58.96 kg

DRUGS (2)
  1. ENDARI [Suspect]
     Active Substance: GLUTAMINE
     Indication: Sickle cell disease
     Route: 048
     Dates: start: 20200701
  2. Follic acid [Concomitant]
     Indication: Sickle cell anaemia
     Route: 048
     Dates: start: 2006

REACTIONS (2)
  - Gastrointestinal disorder [Recovered/Resolved]
  - Product dose omission issue [Unknown]
